FAERS Safety Report 24620909 (Version 2)
Quarter: 2024Q4

REPORT INFORMATION
  Report Type: Spontaneous
  Country: CN (occurrence: CN)
  Receive Date: 20241114
  Receipt Date: 20241121
  Transmission Date: 20250115
  Serious: Yes (Hospitalization, Other)
  Sender: NOVARTIS
  Company Number: CN-002147023-NVSC2024CN218956

PATIENT
  Age: 42 Year
  Sex: Male
  Weight: 46 kg

DRUGS (2)
  1. EVEROLIMUS [Suspect]
     Active Substance: EVEROLIMUS
     Indication: Targeted cancer therapy
     Dosage: 10.000 MG, QD
     Route: 048
     Dates: start: 20241029, end: 20241105
  2. CYCLOPHOSPHAMIDE [Suspect]
     Active Substance: CYCLOPHOSPHAMIDE
     Indication: Chemotherapy
     Dosage: 600.000 MG, QD
     Route: 041
     Dates: start: 20241029, end: 20241029

REACTIONS (9)
  - Granulocyte count decreased [Recovering/Resolving]
  - Pyrexia [Unknown]
  - Platelet count decreased [Recovering/Resolving]
  - White blood cell count decreased [Unknown]
  - Heart rate increased [Unknown]
  - Haemoglobin decreased [Unknown]
  - Temperature intolerance [Unknown]
  - Asthenia [Unknown]
  - Decreased appetite [Unknown]

NARRATIVE: CASE EVENT DATE: 20241105
